FAERS Safety Report 19235673 (Version 2)
Quarter: 2021Q3

REPORT INFORMATION
  Report Type: Spontaneous
  Country: CA (occurrence: CA)
  Receive Date: 20210510
  Receipt Date: 20210726
  Transmission Date: 20211014
  Serious: Yes (Life-Threatening, Hospitalization, Other)
  Sender: FDA-Public Use
  Company Number: CA-SA-2021SA148191

PATIENT
  Sex: Female

DRUGS (9)
  1. CEFOTAXIME SODIUM [Suspect]
     Active Substance: CEFOTAXIME SODIUM
     Indication: EVIDENCE BASED TREATMENT
     Dosage: INJECTION
  2. VANCOMYCIN [Suspect]
     Active Substance: VANCOMYCIN
     Indication: BACTERIAL SEPSIS
  3. RIFAMPICIN [Suspect]
     Active Substance: RIFAMPIN
     Indication: EVIDENCE BASED TREATMENT
     Dosage: UNK
  4. AMPICILLIN [Suspect]
     Active Substance: AMPICILLIN
     Indication: MENINGITIS HAEMOPHILUS
  5. VANCOMYCIN [Suspect]
     Active Substance: VANCOMYCIN
     Indication: MENINGITIS
     Dosage: UNK
  6. VANCOMYCIN [Suspect]
     Active Substance: VANCOMYCIN
     Indication: EVIDENCE BASED TREATMENT
  7. CEFOTAXIME SODIUM [Suspect]
     Active Substance: CEFOTAXIME SODIUM
     Indication: MENINGITIS
  8. AMPICILLIN [Suspect]
     Active Substance: AMPICILLIN
     Indication: HAEMOPHILUS SEPSIS
  9. RIFAMPICIN [Suspect]
     Active Substance: RIFAMPIN
     Indication: MENINGITIS

REACTIONS (5)
  - Hydrocephalus [Recovering/Resolving]
  - Intraventricular haemorrhage [Recovering/Resolving]
  - Bacterial sepsis [Recovering/Resolving]
  - Candida infection [Recovering/Resolving]
  - Device related infection [Recovering/Resolving]
